FAERS Safety Report 6856640-3 (Version None)
Quarter: 2010Q3

REPORT INFORMATION
  Report Type: 
  Country: None (occurrence: None)
  Receive Date: 20100719
  Receipt Date: 20100713
  Transmission Date: 20110219
  Serious: Yes (Death, Congenital Anomaly)
  Sender: FDA-Public Use
  Company Number: US-MERCK-1007USA01498B1

PATIENT
  Sex: Male
  Weight: 1 kg

DRUGS (8)
  1. ISENTRESS [Suspect]
     Indication: ACQUIRED IMMUNODEFICIENCY SYNDROME
     Route: 064
     Dates: end: 20100323
  2. PREZISTA [Concomitant]
     Indication: ACQUIRED IMMUNODEFICIENCY SYNDROME
     Route: 064
     Dates: start: 20090101, end: 20091201
  3. PREZISTA [Concomitant]
     Route: 064
     Dates: end: 20100514
  4. NORVIR [Concomitant]
     Indication: ACQUIRED IMMUNODEFICIENCY SYNDROME
     Route: 064
  5. EMTRIVA [Concomitant]
     Indication: ACQUIRED IMMUNODEFICIENCY SYNDROME
     Route: 064
     Dates: end: 20100323
  6. KALETRA [Concomitant]
     Indication: ACQUIRED IMMUNODEFICIENCY SYNDROME
     Route: 064
     Dates: start: 20100324, end: 20100513
  7. VIREAD [Concomitant]
     Route: 064
     Dates: start: 20100324, end: 20100513
  8. COMBIVIR [Concomitant]
     Indication: ACQUIRED IMMUNODEFICIENCY SYNDROME
     Route: 064
     Dates: start: 20100514

REACTIONS (3)
  - CONGENITAL ANOMALY [None]
  - DRUG EXPOSURE DURING PREGNANCY [None]
  - INTRA-UTERINE DEATH [None]
